FAERS Safety Report 5585369-7 (Version None)
Quarter: 2008Q1

REPORT INFORMATION
  Report Type: 
  Country: None (occurrence: None)
  Receive Date: 20080109
  Receipt Date: 20080104
  Transmission Date: 20080703
  Serious: Yes (Life-Threatening, Hospitalization)
  Sender: FDA-Public Use
  Company Number: US-JNJFOC-20080100909

PATIENT
  Sex: Female
  Weight: 117.94 kg

DRUGS (2)
  1. FENTANYL TRANSDERMAL SYSTEM [Suspect]
     Indication: INTERVERTEBRAL DISC PROTRUSION
     Route: 062
  2. SEROQUEL [Suspect]
     Indication: MENTAL IMPAIRMENT
     Route: 048

REACTIONS (4)
  - BREAKTHROUGH PAIN [None]
  - NAUSEA [None]
  - PANCREATITIS [None]
  - VOMITING [None]
